FAERS Safety Report 9046672 (Version 1)
Quarter: 2013Q1

REPORT INFORMATION
  Report Type: Spontaneous
  Country: US (occurrence: US)
  Receive Date: 20130204
  Receipt Date: 20130204
  Transmission Date: 20140127
  Serious: No
  Sender: FDA-Public Use
  Company Number: US-BIOGENIDEC-2013BI008004

PATIENT
  Age: 46 Year
  Sex: Female

DRUGS (12)
  1. TYSABRI [Suspect]
     Indication: MULTIPLE SCLEROSIS
     Route: 042
     Dates: start: 20110914
  2. TYSABRI [Suspect]
     Indication: MULTIPLE SCLEROSIS
     Route: 042
  3. AVONEX [Concomitant]
     Indication: MULTIPLE SCLEROSIS
     Route: 030
  4. NUVIGIL [Concomitant]
     Indication: ASTHENIA
  5. BACLOFEN [Concomitant]
     Indication: MUSCLE SPASMS
  6. XANAX [Concomitant]
     Indication: ANXIETY
  7. TRICOR [Concomitant]
     Indication: BLOOD CHOLESTEROL INCREASED
  8. GEODON [Concomitant]
     Indication: DELUSION
  9. METOPROLOL [Concomitant]
     Indication: MITRAL VALVE PROLAPSE
  10. TRILEPTAL [Concomitant]
     Indication: INSOMNIA
  11. VIIBRYD [Concomitant]
     Indication: DEPRESSION
  12. VITAMIN D [Concomitant]
     Indication: VITAMIN D DEFICIENCY

REACTIONS (3)
  - Burning sensation [Not Recovered/Not Resolved]
  - Photosensitivity reaction [Not Recovered/Not Resolved]
  - Rash [Not Recovered/Not Resolved]
